FAERS Safety Report 9422790 (Version 1)
Quarter: 2013Q3

REPORT INFORMATION
  Report Type: Spontaneous
  Country: US (occurrence: US)
  Receive Date: 20130726
  Receipt Date: 20130726
  Transmission Date: 20140515
  Serious: Yes (Hospitalization)
  Sender: FDA-Public Use
  Company Number: US-BIOGENIDEC-2013BI065685

PATIENT
  Age: 43 Year
  Sex: Female

DRUGS (4)
  1. TECFIDERA [Suspect]
     Indication: MULTIPLE SCLEROSIS
     Route: 048
     Dates: start: 20130513
  2. TOPIRAMATE [Concomitant]
  3. LISINOPRIL [Concomitant]
  4. FERROUS SULFATE [Concomitant]

REACTIONS (2)
  - Hypoaesthesia [Unknown]
  - Blindness unilateral [Unknown]
